FAERS Safety Report 26174010 (Version 1)
Quarter: 2025Q4

REPORT INFORMATION
  Report Type: Spontaneous
  Country: EU (occurrence: EU)
  Receive Date: 20251218
  Receipt Date: 20251218
  Transmission Date: 20260117
  Serious: Yes (Other)
  Sender: DR REDDYS
  Company Number: None

PATIENT
  Age: 29 Year
  Sex: Female
  Weight: 55.3 kg

DRUGS (13)
  1. SILDENAFIL [Suspect]
     Active Substance: SILDENAFIL
     Indication: Exposure during pregnancy
     Dosage: 20 MG, TID
     Route: 048
  2. SILDENAFIL [Suspect]
     Active Substance: SILDENAFIL
     Dosage: 20 MG, TID
     Route: 048
     Dates: start: 20150105, end: 20150323
  3. APIXABAN [Suspect]
     Active Substance: APIXABAN
     Indication: Exposure during pregnancy
     Route: 065
  4. TREPROSTINIL [Suspect]
     Active Substance: TREPROSTINIL
     Indication: Exposure during pregnancy
     Route: 065
  5. AZATHIOPRINE [Suspect]
     Active Substance: AZATHIOPRINE
     Indication: Exposure during pregnancy
     Dosage: 50 UNK, QD 1 IN 1 DAY
     Route: 048
     Dates: start: 20150416, end: 20151010
  6. HYDROXYCHLOROQUINE SULFATE [Suspect]
     Active Substance: HYDROXYCHLOROQUINE SULFATE
     Indication: Exposure during pregnancy
     Route: 048
     Dates: start: 20150727, end: 20150907
  7. OPSUMIT [Suspect]
     Active Substance: MACITENTAN
     Indication: Exposure during pregnancy
     Dosage: DAILY DOSE: 10 MG MILLIGRAM(S) EVERY DAY
     Route: 048
     Dates: start: 20141124, end: 20150323
  8. PREDNISOLONE [Suspect]
     Active Substance: PREDNISOLONE
     Indication: Exposure during pregnancy
     Dosage: UNK
     Route: 065
     Dates: start: 20150727, end: 20150907
  9. TINZAPARIN [Suspect]
     Active Substance: TINZAPARIN
     Indication: Pulmonary arterial hypertension
     Dosage: 20000 [IE/D ]
     Route: 058
     Dates: start: 20150416, end: 20151010
  10. VENTAVIS [Suspect]
     Active Substance: ILOPROST
     Indication: Exposure during pregnancy
     Dosage: UNK
     Route: 055
     Dates: end: 201505
  11. Femibion (Nahrungserganzungsmittel) [Concomitant]
     Indication: Prophylaxis of neural tube defect
     Route: 048
     Dates: start: 20150330, end: 20150428
  12. BETAMETHASONE [Concomitant]
     Active Substance: BETAMETHASONE
     Indication: Maternal therapy to enhance foetal lung maturity
     Route: 030
     Dates: start: 20150916, end: 20150917
  13. ATOSIBAN [Concomitant]
     Active Substance: ATOSIBAN
     Indication: Tocolysis
     Route: 065
     Dates: start: 20151010, end: 20151010

REACTIONS (1)
  - Exposure during pregnancy [Unknown]
